FAERS Safety Report 8849685 (Version 2)
Quarter: 2013Q1

REPORT INFORMATION
  Report Type: Spontaneous
  Country: IE (occurrence: IE)
  Receive Date: 20121019
  Receipt Date: 20130222
  Transmission Date: 20140127
  Serious: Yes (Other)
  Sender: FDA-Public Use
  Company Number: PHHY2012IE093374

PATIENT
  Age: 35 Year
  Sex: Female

DRUGS (2)
  1. GILENYA [Suspect]
     Indication: RELAPSING-REMITTING MULTIPLE SCLEROSIS
     Dosage: 0.5 MG, QD
     Route: 048
     Dates: start: 20120926
  2. FAMPYRA [Concomitant]
     Indication: MOBILITY DECREASED

REACTIONS (4)
  - Ligament sprain [Unknown]
  - Muscular weakness [Unknown]
  - Fall [Unknown]
  - Tremor [Unknown]
